FAERS Safety Report 9665838 (Version 1)
Quarter: 2013Q4

REPORT INFORMATION
  Report Type: Spontaneous
  Country: JP (occurrence: JP)
  Receive Date: 20131104
  Receipt Date: 20131104
  Transmission Date: 20140711
  Serious: Yes (Hospitalization)
  Sender: FDA-Public Use
  Company Number: JP-ASTELLAS-2013JP012015

PATIENT
  Age: 69 Year
  Sex: Male

DRUGS (4)
  1. BETANIS [Suspect]
     Dosage: 50 MG, UID/QD
     Route: 048
  2. INDERAL [Concomitant]
     Route: 048
  3. URIEF [Concomitant]
     Route: 048
  4. DRUGS USED IN DIABETES [Concomitant]
     Route: 065

REACTIONS (1)
  - Lower limb fracture [Unknown]
